FAERS Safety Report 23822884 (Version 1)
Quarter: 2024Q2

REPORT INFORMATION
  Report Type: Report from Study
  Country: NL (occurrence: NL)
  Receive Date: 20240506
  Receipt Date: 20240506
  Transmission Date: 20240715
  Serious: Yes (Hospitalization)
  Sender: FDA-Public Use
  Company Number: NL-ABBVIE-5745921

PATIENT
  Sex: Female

DRUGS (5)
  1. CARBIDOPA\LEVODOPA [Suspect]
     Active Substance: CARBIDOPA\LEVODOPA
     Indication: Parkinson^s disease
     Route: 050
     Dates: start: 20220830
  2. CARBIDOPA\LEVODOPA [Suspect]
     Active Substance: CARBIDOPA\LEVODOPA
     Dosage: MD: 9.5ML, CD: 4.3ML/H, ED: 3.2ML, CND: 4.1ML/H, END: 3.2ML, ?REMAINS AT 24 HOURS
     Route: 050
     Dates: start: 20240502
  3. CARBIDOPA\LEVODOPA [Suspect]
     Active Substance: CARBIDOPA\LEVODOPA
     Dosage: MD: 8.0ML, CD: 3.7ML/H, ED: 3.2ML, CND: 3.5ML/H, END: 3.2ML, ?REMAINS AT 24 HOURS
     Route: 050
     Dates: start: 20240102, end: 20240327
  4. CARBIDOPA\LEVODOPA [Suspect]
     Active Substance: CARBIDOPA\LEVODOPA
     Dosage: MD: 8.0ML, CD: 3.7ML/H, ED: 3.2ML, CND: 3.5ML/H, ?REMAINS AT 24 HOURS
     Route: 050
     Dates: start: 20240327, end: 20240502
  5. MAGNESIUM [Concomitant]
     Active Substance: MAGNESIUM
     Indication: Product used for unknown indication
     Route: 065

REACTIONS (2)
  - Medical device adjustment [Not Recovered/Not Resolved]
  - Drug interaction [Unknown]
